FAERS Safety Report 5915157-0 (Version None)
Quarter: 2008Q4

REPORT INFORMATION
  Report Type: 
  Country: None (occurrence: None)
  Receive Date: 20081010
  Receipt Date: 20080930
  Transmission Date: 20090506
  Serious: Yes (Other)
  Sender: FDA-Public Use
  Company Number: UG-ABBOTT-08P-165-0466141-00

PATIENT
  Age: 39 Year
  Sex: Female

DRUGS (6)
  1. KALETRA [Suspect]
     Indication: HIV INFECTION
     Route: 048
     Dates: start: 20070514
  2. NEVIRAPINE [Concomitant]
     Indication: HIV INFECTION
     Route: 048
     Dates: start: 20080218, end: 20080303
  3. NEVIRAPINE [Concomitant]
     Route: 048
     Dates: start: 20080303
  4. EFAVIRENZ [Concomitant]
     Indication: HIV INFECTION
     Route: 048
     Dates: start: 20070514, end: 20080218
  5. DIDANOSINE [Concomitant]
     Indication: HIV INFECTION
     Route: 048
     Dates: start: 20070514
  6. AMOXICILLIN [Concomitant]
     Dates: start: 20080121, end: 20080303

REACTIONS (1)
  - ABORTION SPONTANEOUS [None]
